FAERS Safety Report 16172236 (Version 1)
Quarter: 2019Q2

REPORT INFORMATION
  Report Type: Other
  Country: PT (occurrence: PT)
  Receive Date: 20190409
  Receipt Date: 20190409
  Transmission Date: 20190711
  Serious: Yes (Other)
  Sender: FDA-Public Use
  Company Number: PT-FDC LIMITED-2065508

PATIENT
  Age: 38 Year
  Sex: Male

DRUGS (6)
  1. FOSCARNET [Interacting]
     Active Substance: FOSCARNET
     Route: 065
  2. PYRAZINAMIDE. [Concomitant]
     Active Substance: PYRAZINAMIDE
     Route: 065
  3. RIFAMPIN. [Concomitant]
     Active Substance: RIFAMPIN
     Route: 065
  4. CIPROFLOXACIN. [Suspect]
     Active Substance: CIPROFLOXACIN
     Indication: PRODUCT USED FOR UNKNOWN INDICATION
     Route: 065
  5. CLOFAZIMINE [Concomitant]
     Active Substance: CLOFAZIMINE
     Route: 065
  6. ETHAMBUTOL [Concomitant]
     Active Substance: ETHAMBUTOL HYDROCHLORIDE
     Route: 065

REACTIONS (2)
  - Generalised tonic-clonic seizure [Unknown]
  - Drug interaction [Unknown]
